FAERS Safety Report 4369987-X (Version None)
Quarter: 2004Q2

REPORT INFORMATION
  Report Type: 
  Country: None (occurrence: None)
  Receive Date: 20040603
  Receipt Date: 20040505
  Transmission Date: 20050107
  Serious: Yes (Other)
  Sender: FDA-Public Use
  Company Number: US-GLAXOSMITHKLINE-A0511734A

PATIENT
  Sex: Female

DRUGS (6)
  1. AVANDIA [Suspect]
     Indication: DRUG USE FOR UNKNOWN INDICATION
  2. AMARYL [Concomitant]
  3. GLUCOPHAGE [Concomitant]
  4. MONOPRIL [Concomitant]
  5. PEPCID [Concomitant]
  6. PREMARIN [Concomitant]

REACTIONS (5)
  - HAEMANGIOMA OF LIVER [None]
  - HEPATIC CIRRHOSIS [None]
  - HEPATIC STEATOSIS [None]
  - HEPATOMEGALY [None]
  - LIVER DISORDER [None]
